FAERS Safety Report 5028061-X (Version None)
Quarter: 2006Q2

REPORT INFORMATION
  Report Type: 
  Country: None (occurrence: None)
  Receive Date: 20060616
  Receipt Date: 20060508
  Transmission Date: 20061013
  Serious: Yes (Other)
  Sender: FDA-Public Use
  Company Number: US-SANOFI-SYNTHELABO-A03200602872

PATIENT
  Sex: Male
  Weight: 74.8 kg

DRUGS (7)
  1. UROXATRAL [Suspect]
     Indication: BENIGN PROSTATIC HYPERPLASIA
     Route: 048
     Dates: start: 20060201, end: 20060504
  2. VITAMINS [Concomitant]
     Dosage: UNK
     Route: 065
  3. IMITREX [Concomitant]
     Indication: MIGRAINE
     Dosage: UNK
     Route: 065
  4. REGALIN [Concomitant]
     Indication: DRUG USE FOR UNKNOWN INDICATION
     Dosage: UNK
     Route: 065
  5. PHERGAN [Concomitant]
     Indication: DRUG USE FOR UNKNOWN INDICATION
     Dosage: UNK
     Route: 065
  6. PROSCAR [Concomitant]
     Indication: BENIGN PROSTATIC HYPERPLASIA
     Dosage: UNK
     Route: 065
  7. TERAZOSIN HCL [Concomitant]
     Indication: BENIGN PROSTATIC HYPERPLASIA
     Dosage: UNK
     Route: 065

REACTIONS (3)
  - HEPATITIS B ANTIGEN POSITIVE [None]
  - HEPATOTOXICITY [None]
  - TRANSAMINASES INCREASED [None]
